FAERS Safety Report 10068541 (Version 3)
Quarter: 2015Q1

REPORT INFORMATION
  Report Type: Spontaneous
  Country: DE (occurrence: DE)
  Receive Date: 20140409
  Receipt Date: 20150206
  Transmission Date: 20150720
  Serious: Yes (Life-Threatening, Hospitalization, Disabling, Other)
  Sender: FDA-Public Use
  Company Number: DE-GLAXOSMITHKLINE-D0083513A

PATIENT
  Age: 32 Year
  Sex: Female
  Weight: 80 kg

DRUGS (2)
  1. HYDROXYCHLOROQUINE [Concomitant]
     Active Substance: HYDROXYCHLOROQUINE
     Indication: SYSTEMIC LUPUS ERYTHEMATOSUS
     Dosage: 200 MG, BID
     Route: 065
     Dates: start: 2006
  2. BENLYSTA [Suspect]
     Active Substance: BELIMUMAB
     Indication: SYSTEMIC LUPUS ERYTHEMATOSUS
     Route: 042
     Dates: start: 20140317, end: 20140331

REACTIONS (2)
  - Cerebrovascular accident [Not Recovered/Not Resolved]
  - Hemiparesis [Not Recovered/Not Resolved]

NARRATIVE: CASE EVENT DATE: 20140402
